FAERS Safety Report 12959428 (Version 1)
Quarter: 2016Q4

REPORT INFORMATION
  Report Type: Spontaneous
  Country: US (occurrence: US)
  Receive Date: 20161118
  Receipt Date: 20161118
  Transmission Date: 20170207
  Serious: Yes (Other)
  Sender: FDA-Public Use
  Company Number: None

PATIENT
  Age: 38 Year
  Sex: Male

DRUGS (1)
  1. PALIPERIDONE. [Suspect]
     Active Substance: PALIPERIDONE
     Indication: PSYCHOTIC DISORDER
     Route: 048
     Dates: start: 20160910, end: 20160916

REACTIONS (6)
  - Jaundice [None]
  - Alanine aminotransferase increased [None]
  - Aspartate aminotransferase increased [None]
  - Hypoalbuminaemia [None]
  - Liver function test increased [None]
  - Ocular icterus [None]

NARRATIVE: CASE EVENT DATE: 20160916
